FAERS Safety Report 14664694 (Version 1)
Quarter: 2018Q1

REPORT INFORMATION
  Report Type: Spontaneous
  Country: US (occurrence: US)
  Receive Date: 20180321
  Receipt Date: 20180321
  Transmission Date: 20180509
  Serious: Yes (Other)
  Sender: FDA-Public Use
  Company Number: US-MYLANLABS-2018M1017043

PATIENT
  Age: 23 Year
  Sex: Female

DRUGS (1)
  1. HEPARIN [Suspect]
     Active Substance: HEPARIN SODIUM
     Indication: BUDD-CHIARI SYNDROME
     Dosage: UNK
     Route: 042

REACTIONS (4)
  - Portal vein thrombosis [Unknown]
  - Ecchymosis [Unknown]
  - Heparin-induced thrombocytopenia [Unknown]
  - Eschar [Unknown]
